FAERS Safety Report 21513080 (Version 1)
Quarter: 2022Q4

REPORT INFORMATION
  Report Type: Spontaneous
  Country: RU (occurrence: None)
  Receive Date: 20221027
  Receipt Date: 20221027
  Transmission Date: 20230112
  Serious: Yes (Other)
  Sender: FDA-Public Use
  Company Number: RU-ROCHE-3206067

PATIENT
  Age: 51 Year

DRUGS (2)
  1. ATEZOLIZUMAB [Suspect]
     Active Substance: ATEZOLIZUMAB
     Indication: Lung adenocarcinoma stage IV
     Dosage: 14 ADMINISTRATIONS WERE PERFORMED, THE LAST ONE - 21/OCT/2022
     Route: 041
     Dates: start: 20211029
  2. DENOSUMAB [Suspect]
     Active Substance: DENOSUMAB
     Indication: Lung adenocarcinoma stage IV
     Route: 058
     Dates: start: 20211029

REACTIONS (2)
  - Coronavirus infection [Unknown]
  - Asthenia [Unknown]
